FAERS Safety Report 6911682-4 (Version None)
Quarter: 2010Q3

REPORT INFORMATION
  Report Type: 
  Country: None (occurrence: None)
  Receive Date: 20100806
  Receipt Date: 20100726
  Transmission Date: 20110219
  Serious: Yes (Disabling, Other)
  Sender: FDA-Public Use
  Company Number: NZ-WYE-G06329310

PATIENT
  Sex: Female

DRUGS (6)
  1. EFFEXOR XR [Suspect]
     Indication: DEPRESSION
     Route: 048
     Dates: start: 20100527, end: 20100718
  2. PROMETHAZINE [Concomitant]
     Indication: SEASONAL ALLERGY
     Dosage: TOTAL DAILY DOSE 20MG
     Route: 048
  3. AUGMENTIN '125' [Concomitant]
     Indication: EYE INFECTION
     Dosage: UNKNOWN
     Dates: start: 20100611
  4. CIPROXIN [Concomitant]
     Indication: EYE INFECTION
     Dosage: UNKNOWN
     Dates: start: 20100611
  5. PARACETAMOL [Concomitant]
     Indication: HEADACHE
     Dosage: WHEN REQUIRED
  6. IBUPROFEN [Suspect]
     Indication: HEADACHE
     Dosage: WHEN REQUIRED

REACTIONS (10)
  - ACTIVITIES OF DAILY LIVING IMPAIRED [None]
  - AMNESIA [None]
  - CONDITION AGGRAVATED [None]
  - DRUG WITHDRAWAL SYNDROME [None]
  - FATIGUE [None]
  - HYPERACUSIS [None]
  - NAUSEA [None]
  - SUICIDAL IDEATION [None]
  - TREMOR [None]
  - VERTIGO [None]
